FAERS Safety Report 22031447 (Version 1)
Quarter: 2023Q1

REPORT INFORMATION
  Report Type: Spontaneous
  Country: US (occurrence: US)
  Receive Date: 20230224
  Receipt Date: 20230224
  Transmission Date: 20230418
  Serious: Yes (Hospitalization)
  Sender: FDA-Public Use
  Company Number: US-ENDO PHARMACEUTICALS INC-2023-000944

PATIENT
  Age: 18 Year
  Sex: Female

DRUGS (2)
  1. CLONIDINE HYDROCHLORIDE [Suspect]
     Active Substance: CLONIDINE HYDROCHLORIDE
     Indication: Insomnia
     Dosage: UNK UNKNOWN (SEVEN TO 15 PILLS), UNKNOWN
     Route: 048
  2. CLONIDINE HYDROCHLORIDE [Suspect]
     Active Substance: CLONIDINE HYDROCHLORIDE
     Dosage: 0.2 MG, UNKNOWN
     Route: 065

REACTIONS (4)
  - Encephalopathy [Recovered/Resolved with Sequelae]
  - Tachycardia [Recovered/Resolved]
  - Overdose [Recovered/Resolved]
  - Off label use [Unknown]
